FAERS Safety Report 9412620 (Version 2)
Quarter: 2013Q4

REPORT INFORMATION
  Report Type: Spontaneous
  Country: GB (occurrence: GB)
  Receive Date: 20130621
  Receipt Date: 20131206
  Transmission Date: 20140711
  Serious: Yes (Disabling)
  Sender: FDA-Public Use
  Company Number: 1185829

PATIENT
  Age: 36 Year
  Sex: Female
  Weight: 59.88 kg

DRUGS (1)
  1. TAMOXIFEN [Suspect]
     Indication: BREAST CANCER
     Route: 048
     Dates: start: 201302

REACTIONS (6)
  - Gait disturbance [None]
  - Mobility decreased [None]
  - Decreased activity [None]
  - Arthralgia [None]
  - Myalgia [None]
  - Musculoskeletal stiffness [None]
